FAERS Safety Report 4888975-8 (Version None)
Quarter: 2005Q4

REPORT INFORMATION
  Report Type: 
  Country: None (occurrence: None)
  Receive Date: 20051215
  Receipt Date: 20050614
  Transmission Date: 20060501
  Serious: Yes (Hospitalization, Other)
  Sender: FDA-Public Use
  Company Number: 2005062933

PATIENT
  Age: 60 Year
  Sex: Male

DRUGS (7)
  1. BEXTRA [Suspect]
     Indication: ARTHRITIS
     Dosage: 10 MG (10 MG, QD INTERVAL:  EVERY DAY), ORAL
     Route: 048
     Dates: start: 20020404, end: 20041214
  2. BEXTRA [Suspect]
     Indication: INTERVERTEBRAL DISC DEGENERATION
     Dosage: 10 MG (10 MG, QD INTERVAL:  EVERY DAY), ORAL
     Route: 048
     Dates: start: 20020404, end: 20041214
  3. BEXTRA [Suspect]
     Indication: PAIN
     Dosage: 10 MG (10 MG, QD INTERVAL:  EVERY DAY), ORAL
     Route: 048
     Dates: start: 20020404, end: 20041214
  4. DIOVAN [Concomitant]
  5. BUMEX [Concomitant]
  6. PREVACID [Concomitant]
  7. ALL OTHER THERAPEUTIC PRODUCTS (ALL OTHER THERAPEUTIC PRODUCTS) [Concomitant]

REACTIONS (14)
  - ABDOMINAL PAIN [None]
  - ARTHRITIS [None]
  - BRADYCARDIA [None]
  - CARDIAC ENZYMES INCREASED [None]
  - CERUMEN IMPACTION [None]
  - DECREASED ACTIVITY [None]
  - DIARRHOEA [None]
  - FLUSHING [None]
  - HYPERHIDROSIS [None]
  - MENIERE'S DISEASE [None]
  - NAUSEA [None]
  - SYNCOPE [None]
  - VENOUS INSUFFICIENCY [None]
  - VOMITING [None]
